FAERS Safety Report 11529697 (Version 1)
Quarter: 2015Q3

REPORT INFORMATION
  Report Type: Other
  Country: GB (occurrence: GB)
  Receive Date: 20150921
  Receipt Date: 20150921
  Transmission Date: 20151125
  Serious: Yes (Other)
  Sender: FDA-Public Use
  Company Number: GB-MYLANLABS-2015M1030526

PATIENT

DRUGS (1)
  1. DILTIAZEM [Suspect]
     Active Substance: DILTIAZEM
     Dosage: UNK
     Route: 048
     Dates: start: 20150202, end: 20150803

REACTIONS (2)
  - Malaise [Recovered/Resolved]
  - Palpitations [Recovered/Resolved]

NARRATIVE: CASE EVENT DATE: 20150202
